FAERS Safety Report 6330390-4 (Version None)
Quarter: 2009Q3

REPORT INFORMATION
  Report Type: 
  Country: None (occurrence: None)
  Receive Date: 20090826
  Receipt Date: 20090826
  Transmission Date: 20100115
  Serious: No
  Sender: FDA-Public Use
  Company Number: None

PATIENT
  Sex: Male

DRUGS (1)
  1. ABILIFY [Suspect]
     Dosage: 1/2 TABLET ONCE DAILY PO
     Route: 048
     Dates: start: 20090803, end: 20090822

REACTIONS (4)
  - DECREASED APPETITE [None]
  - FEELING ABNORMAL [None]
  - GASTRIC DISORDER [None]
  - LIMB DISCOMFORT [None]
